FAERS Safety Report 8026238-2 (Version None)
Quarter: 2012Q1

REPORT INFORMATION
  Report Type: 
  Country: None (occurrence: None)
  Receive Date: 20120105
  Receipt Date: 20110310
  Transmission Date: 20120608
  Serious: No
  Sender: FDA-Public Use
  Company Number: US-ABBOTT-11P-163-0711252-00

PATIENT
  Age: 54 Year
  Sex: Female

DRUGS (10)
  1. ACIPHEX [Concomitant]
     Indication: GASTROOESOPHAGEAL REFLUX DISEASE
  2. CENTRUM SILVER FOR WOMEN [Concomitant]
     Indication: VITAMIN SUPPLEMENTATION
  3. SYNTHROID [Suspect]
     Indication: HYPOTHYROIDISM
     Dosage: AT 5AM EVERY MORNING
     Route: 048
  4. METAFAST WEIGHT LOSS SUPPLEMENT [Suspect]
     Indication: WEIGHT DECREASED
     Route: 048
     Dates: start: 20110101
  5. OSTEO BI-FLEX [Concomitant]
     Indication: PRODUCT USED FOR UNKNOWN INDICATION
     Dosage: IN THE MORNING
  6. FISH OIL [Concomitant]
     Indication: SUPPLEMENTATION THERAPY
  7. NAPROXEN [Concomitant]
     Indication: PAIN
  8. CALCIUM ACETATE [Concomitant]
     Indication: MINERAL SUPPLEMENTATION
  9. LOVAZA [Concomitant]
     Indication: SUPPLEMENTATION THERAPY
  10. NAPROXEN [Concomitant]

REACTIONS (5)
  - DIZZINESS [None]
  - VISION BLURRED [None]
  - APHASIA [None]
  - FATIGUE [None]
  - HEADACHE [None]
